FAERS Safety Report 15800713 (Version 2)
Quarter: 2019Q1

REPORT INFORMATION
  Report Type: Spontaneous
  Country: US (occurrence: US)
  Receive Date: 20190109
  Receipt Date: 20190201
  Transmission Date: 20190417
  Serious: Yes (Other)
  Sender: FDA-Public Use
  Company Number: US-AMGEN-USASP2019001025

PATIENT
  Age: 67 Year
  Sex: Female
  Weight: 55.33 kg

DRUGS (12)
  1. TYPHOID VACCINE [Concomitant]
     Active Substance: TYPHOID VACCINE
     Dosage: UNK UNK, QD
     Route: 048
  2. BIOTIN [Concomitant]
     Active Substance: BIOTIN
     Dosage: 1 MG, QD
     Route: 048
  3. ASPIRIN. [Concomitant]
     Active Substance: ASPIRIN
     Dosage: 81 MG, QD
     Route: 048
  4. FLONASE [Concomitant]
     Active Substance: FLUTICASONE PROPIONATE
     Dosage: 50 MUG, QD
     Route: 045
  5. CALCIUM [Concomitant]
     Active Substance: CALCIUM
     Dosage: UNK
  6. CITRACAL [Concomitant]
     Active Substance: CALCIUM CITRATE
     Dosage: UNK UNK, QD
     Route: 048
  7. AMOXICILLIN/CLAV POT [Concomitant]
     Dosage: 875/125 MG, BID
     Route: 048
     Dates: start: 20181214, end: 20181224
  8. PROLIA [Suspect]
     Active Substance: DENOSUMAB
     Indication: OSTEOPOROSIS POSTMENOPAUSAL
     Dosage: 60 MG, Q6MO
     Route: 058
     Dates: start: 20181205
  9. ERGOCALCIFEROL. [Concomitant]
     Active Substance: ERGOCALCIFEROL
     Indication: VITAMIN D DEFICIENCY
     Dosage: 50000 UNIT, QWK
     Route: 048
     Dates: start: 20181031
  10. DOXYCYCLINE HYCLATE. [Concomitant]
     Active Substance: DOXYCYCLINE HYCLATE
     Dosage: 100 MG, QD
     Route: 048
  11. HYDROCODONE/ACETAMINOPHEN [Concomitant]
     Active Substance: ACETAMINOPHEN\HYDROCODONE
     Indication: PAIN
     Dosage: 5/325 MG
     Route: 048
     Dates: start: 20181214, end: 20190103
  12. MEFLOQUINE HCL [Concomitant]
     Active Substance: MEFLOQUINE
     Dosage: 250 MG, QWK

REACTIONS (6)
  - Chest pain [Recovering/Resolving]
  - Rash papular [Recovering/Resolving]
  - Fatigue [Unknown]
  - Nausea [Unknown]
  - Asthenia [Recovered/Resolved]
  - Pain in extremity [Recovering/Resolving]

NARRATIVE: CASE EVENT DATE: 201812
